FAERS Safety Report 6961565-9 (Version None)
Quarter: 2010Q3

REPORT INFORMATION
  Report Type: 
  Country: None (occurrence: None)
  Receive Date: 20100901
  Receipt Date: 20100830
  Transmission Date: 20110219
  Serious: Yes (Life-Threatening, Hospitalization, Other)
  Sender: FDA-Public Use
  Company Number: US-PFIZER INC-2010074690

PATIENT
  Sex: Male

DRUGS (8)
  1. LIPITOR [Suspect]
     Dosage: 80 MG, 1X/DAY
     Dates: start: 20100217, end: 20100224
  2. BLINDED THERAPY [Suspect]
     Indication: THROMBOSIS PROPHYLAXIS
     Dosage: 10 MG, 1X/DAY
     Route: 048
     Dates: start: 20100222
  3. APIXABAN [Suspect]
     Indication: THROMBOSIS PROPHYLAXIS
     Dosage: 10 MG, 1X/DAY
     Route: 048
     Dates: start: 20100222
  4. COREG [Concomitant]
     Dosage: UNK
     Dates: start: 20100217, end: 20100223
  5. LASIX [Concomitant]
     Dosage: UNK
     Dates: start: 20100220
  6. ACETYLSALICYLIC ACID [Concomitant]
     Dosage: UNK
     Dates: start: 20100218
  7. CLOPIDOGREL BISULFATE [Concomitant]
     Dosage: UNK
     Dates: start: 20100218
  8. ENOXAPARIN SODIUM [Concomitant]
     Dosage: UNK
     Dates: start: 20100224, end: 20100301

REACTIONS (3)
  - ALANINE AMINOTRANSFERASE [None]
  - ASPARTATE AMINOTRANSFERASE INCREASED [None]
  - CARDIAC FAILURE [None]
